FAERS Safety Report 8213252-7 (Version None)
Quarter: 2012Q1

REPORT INFORMATION
  Report Type: 
  Country: None (occurrence: None)
  Receive Date: 20120315
  Receipt Date: 20120309
  Transmission Date: 20120608
  Serious: Yes (Hospitalization, Other)
  Sender: FDA-Public Use
  Company Number: BR-ABBOTT-12P-020-0913561-00

PATIENT
  Sex: Female

DRUGS (5)
  1. LOPERAMIDE [Concomitant]
     Indication: PROPHYLAXIS AGAINST DIARRHOEA
  2. MORPHINE [Concomitant]
     Indication: PAIN
     Route: 042
  3. VITAMIN E [Concomitant]
     Indication: VITAMIN SUPPLEMENTATION
     Route: 048
  4. CLONAZEPAM [Concomitant]
     Indication: INSOMNIA
  5. KALETRA [Suspect]
     Indication: HIV INFECTION
     Route: 048

REACTIONS (6)
  - TONGUE NEOPLASM [None]
  - DYSPHAGIA [None]
  - SOMNOLENCE [None]
  - WRONG TECHNIQUE IN DRUG USAGE PROCESS [None]
  - PYREXIA [None]
  - PALPITATIONS [None]
